FAERS Safety Report 11767116 (Version 1)
Quarter: 2015Q4

REPORT INFORMATION
  Report Type: Spontaneous
  Country: TR (occurrence: TR)
  Receive Date: 20151123
  Receipt Date: 20151123
  Transmission Date: 20160304
  Serious: Yes (Hospitalization)
  Sender: FDA-Public Use
  Company Number: TR-WATSON-2015-25269

PATIENT
  Age: 41 Year
  Sex: Male

DRUGS (1)
  1. LIDOCAINE HYDROCHLORIDE 2% WITH EPINEPHRINE (WATSON LABORATORIES) [Suspect]
     Active Substance: EPINEPHRINE\LIDOCAINE HYDROCHLORIDE
     Indication: LOCAL ANAESTHESIA
     Dosage: 0.0125 MG/ML EPINEPHRINE HYDROCHLORIDE, 02 ML OF LIDOCAINE HYDROCHLORIDE 20 MG/ML
     Route: 045

REACTIONS (1)
  - Haemorrhagic cerebral infarction [Recovered/Resolved with Sequelae]
